FAERS Safety Report 20633097 (Version 2)
Quarter: 2022Q2

REPORT INFORMATION
  Report Type: Spontaneous
  Country: CN (occurrence: CN)
  Receive Date: 20220324
  Receipt Date: 20220402
  Transmission Date: 20220721
  Serious: Yes (Life-Threatening, Hospitalization, Other)
  Sender: FDA-Public Use
  Company Number: CN-MLMSERVICE-20220315-3431610-1

PATIENT
  Age: 66 Year
  Sex: Male

DRUGS (1)
  1. QUETIAPINE [Suspect]
     Active Substance: QUETIAPINE
     Indication: Mental disorder
     Dosage: STRENGTH: 200 MG
     Dates: start: 201604

REACTIONS (5)
  - Blood pressure decreased [Recovered/Resolved]
  - Cerebral infarction [Recovering/Resolving]
  - Toxicity to various agents [Unknown]
  - Pulmonary toxicity [Recovering/Resolving]
  - Overdose [Unknown]

NARRATIVE: CASE EVENT DATE: 20160405
